FAERS Safety Report 7549818-7 (Version None)
Quarter: 2011Q2

REPORT INFORMATION
  Report Type: 
  Country: None (occurrence: None)
  Receive Date: 20110615
  Receipt Date: 20110613
  Transmission Date: 20111010
  Serious: Yes (Hospitalization, Other)
  Sender: FDA-Public Use
  Company Number: US-MERCK-1102USA01220

PATIENT
  Age: 76 Year
  Sex: Female
  Weight: 61 kg

DRUGS (8)
  1. FOSAMAX [Suspect]
     Route: 048
     Dates: start: 20010307, end: 20060719
  2. FOSAMAX [Suspect]
     Route: 048
     Dates: start: 20090720, end: 20100218
  3. FOSAMAX [Suspect]
     Indication: OSTEOPENIA
     Route: 048
     Dates: start: 19980710, end: 20001229
  4. FOSAMAX [Suspect]
     Indication: OSTEOPOROSIS PROPHYLAXIS
     Route: 048
     Dates: start: 19980710, end: 20001229
  5. ALENDRONATE SODIUM [Suspect]
     Indication: OSTEOPENIA
     Route: 048
     Dates: start: 20090106, end: 20090505
  6. FOSAMAX PLUS D [Suspect]
     Indication: OSTEOPENIA
     Route: 048
  7. FOSAMAX PLUS D [Suspect]
     Indication: OSTEOPOROSIS PROPHYLAXIS
     Route: 048
  8. FOSAMAX [Suspect]
     Route: 048
     Dates: start: 20010307, end: 20060719

REACTIONS (39)
  - HAEMOGLOBIN DECREASED [None]
  - MUSCULAR WEAKNESS [None]
  - URINARY TRACT INFECTION [None]
  - TOOTH ABSCESS [None]
  - RIB FRACTURE [None]
  - HAEMATOCRIT DECREASED [None]
  - BACTERIAL INFECTION [None]
  - TYPE 1 DIABETES MELLITUS [None]
  - PARKINSON'S DISEASE [None]
  - NECK PAIN [None]
  - NASAL CONGESTION [None]
  - FINGER DEFORMITY [None]
  - GALLBLADDER DISORDER [None]
  - HAEMATOMA [None]
  - ANXIETY [None]
  - CATARACT [None]
  - CERVICOBRACHIAL SYNDROME [None]
  - DEPRESSION [None]
  - INSOMNIA [None]
  - RESTLESS LEGS SYNDROME [None]
  - FALL [None]
  - RENAL CYST [None]
  - HYPERTONIC BLADDER [None]
  - SEASONAL ALLERGY [None]
  - ASTHMA [None]
  - IMPAIRED HEALING [None]
  - FEMUR FRACTURE [None]
  - LIMB DISCOMFORT [None]
  - BACK DISORDER [None]
  - CERVICAL SPINAL STENOSIS [None]
  - FUNGAL INFECTION [None]
  - BURSITIS [None]
  - INTERVERTEBRAL DISC DEGENERATION [None]
  - URINARY INCONTINENCE [None]
  - LUMBAR RADICULOPATHY [None]
  - GROIN PAIN [None]
  - VITAMIN D DEFICIENCY [None]
  - ARTHRALGIA [None]
  - INTERVERTEBRAL DISC PROTRUSION [None]
